FAERS Safety Report 23309550 (Version 1)
Quarter: 2023Q4

REPORT INFORMATION
  Report Type: Spontaneous
  Country: ES (occurrence: ES)
  Receive Date: 20231218
  Receipt Date: 20231218
  Transmission Date: 20240109
  Serious: Yes (Hospitalization)
  Sender: FDA-Public Use
  Company Number: ES-GILEAD-2022-0609774

PATIENT
  Age: 60 Year
  Sex: Male
  Weight: 68 kg

DRUGS (47)
  1. BREXUCABTAGENE AUTOLEUCEL [Suspect]
     Active Substance: BREXUCABTAGENE AUTOLEUCEL
     Indication: Mantle cell lymphoma
     Dosage: 68
     Route: 042
     Dates: start: 20221128, end: 20221128
  2. CYCLOPHOSPHAMIDE [Suspect]
     Active Substance: CYCLOPHOSPHAMIDE
     Dosage: 1.5
     Route: 065
     Dates: start: 20221025, end: 20221025
  3. CYCLOPHOSPHAMIDE [Suspect]
     Active Substance: CYCLOPHOSPHAMIDE
     Indication: Bone marrow conditioning regimen
     Dosage: 900
     Route: 065
     Dates: start: 20221125, end: 20221125
  4. CYCLOPHOSPHAMIDE [Suspect]
     Active Substance: CYCLOPHOSPHAMIDE
     Dosage: 900
     Route: 065
     Dates: start: 20221123, end: 20221123
  5. CYCLOPHOSPHAMIDE [Suspect]
     Active Substance: CYCLOPHOSPHAMIDE
     Dosage: 900
     Route: 065
     Dates: start: 20221124, end: 20221124
  6. FLUDARABINE [Suspect]
     Active Substance: FLUDARABINE PHOSPHATE
     Indication: Bone marrow conditioning regimen
     Dosage: 54
     Route: 065
     Dates: start: 20221123, end: 20221123
  7. FLUDARABINE [Suspect]
     Active Substance: FLUDARABINE PHOSPHATE
     Dosage: 54
     Route: 065
     Dates: start: 20221124, end: 20221124
  8. FLUDARABINE [Suspect]
     Active Substance: FLUDARABINE PHOSPHATE
     Dosage: 54
     Route: 065
     Dates: start: 20221125, end: 20221125
  9. ACYCLOVIR [Concomitant]
     Active Substance: ACYCLOVIR
     Indication: Product used for unknown indication
     Dosage: 400,MG,TWICE DAILY
     Route: 048
     Dates: start: 20221127
  10. ALLOPURINOL [Concomitant]
     Active Substance: ALLOPURINOL
     Indication: Product used for unknown indication
     Dosage: 300,MG,DAILY
     Route: 048
     Dates: start: 20221122, end: 202301
  11. CALCIUM GLUCONATE [Concomitant]
     Active Substance: CALCIUM GLUCONATE
     Indication: Product used for unknown indication
     Dosage: 4.6,OTHER,DAILY
     Route: 042
     Dates: start: 20221202, end: 20221220
  12. DEXAMETHASONE [Concomitant]
     Active Substance: DEXAMETHASONE
     Indication: Product used for unknown indication
     Dosage: 10,MG,FOUR TIMES DAILY
     Route: 042
     Dates: start: 20221204, end: 20221205
  13. DEXAMETHASONE [Concomitant]
     Active Substance: DEXAMETHASONE
     Dosage: 6,MG,THREE TIMES DAILY
     Route: 042
     Dates: start: 20221205, end: 20221209
  14. DEXCHLORPHENIRAMINE [Concomitant]
     Active Substance: DEXCHLORPHENIRAMINE
     Indication: Product used for unknown indication
     Dosage: 5,MG,ONCE
     Route: 042
     Dates: start: 20221128, end: 20221128
  15. DEXKETOPROFEN [Concomitant]
     Active Substance: DEXKETOPROFEN
     Indication: Product used for unknown indication
     Dosage: 0.5,OTHER,ONCE
     Route: 042
     Dates: start: 20221202, end: 20221202
  16. DIPYRONE [Concomitant]
     Active Substance: DIPYRONE
     Indication: Product used for unknown indication
     Dosage: 2,ML,ONCE
     Route: 042
     Dates: start: 20221202, end: 20221202
  17. EVUSHELD [Concomitant]
     Active Substance: CILGAVIMAB\TIXAGEVIMAB
     Indication: Product used for unknown indication
     Dosage: 2,OTHER,ONCE
     Route: 030
     Dates: start: 20221229, end: 20221229
  18. FUROSEMIDE [Concomitant]
     Active Substance: FUROSEMIDE
     Indication: Product used for unknown indication
     Dosage: 20,MG,DAILY
     Route: 042
     Dates: start: 20221129, end: 20221204
  19. FUROSEMIDE [Concomitant]
     Active Substance: FUROSEMIDE
     Dosage: 20,MG,OTHER
     Route: 042
     Dates: start: 20221206, end: 20221220
  20. HYDROGEN PEROXIDE [Concomitant]
     Active Substance: HYDROGEN PEROXIDE
     Indication: Product used for unknown indication
     Dosage: 5,OTHER,DAILY
     Route: 050
     Dates: start: 20221215, end: 20221220
  21. NOVORAPID [Concomitant]
     Active Substance: INSULIN ASPART
     Indication: Product used for unknown indication
     Dosage: 6,IU,ONCE
     Route: 058
     Dates: start: 20221210, end: 20221210
  22. LEVETIRACETAM [Concomitant]
     Active Substance: LEVETIRACETAM
     Dosage: 500,MG,DAILY
     Route: 048
     Dates: start: 20221215, end: 20221220
  23. LEVETIRACETAM [Concomitant]
     Active Substance: LEVETIRACETAM
     Indication: Product used for unknown indication
     Dosage: 500,MG,TWICE DAILY
     Route: 048
     Dates: start: 20221128, end: 20221213
  24. MAGNESIUM SULFATE [Concomitant]
     Active Substance: MAGNESIUM SULFATE\MAGNESIUM SULFATE HEPTAHYDRATE
     Indication: Product used for unknown indication
     Dosage: 12,OTHER,TWICE DAILY
     Route: 042
     Dates: start: 20221201, end: 20221210
  25. MAGNESIUM SULFATE [Concomitant]
     Active Substance: MAGNESIUM SULFATE\MAGNESIUM SULFATE HEPTAHYDRATE
     Dosage: 12,OTHER,TWICE DAILY
     Route: 042
     Dates: start: 20221130, end: 20221130
  26. Magnogene [Concomitant]
     Indication: Product used for unknown indication
     Dosage: 53,MG,DAILY
     Route: 048
     Dates: start: 20221214, end: 20221220
  27. METAMIZOLE [Concomitant]
     Active Substance: METAMIZOLE
     Indication: Product used for unknown indication
     Dosage: 0.5,OTHER,ONCE
     Route: 042
     Dates: start: 20221129, end: 20221201
  28. METAMIZOLE [Concomitant]
     Active Substance: METAMIZOLE
     Dosage: 0.5,OTHER,ONCE
     Route: 042
     Dates: start: 20221203, end: 20221203
  29. METFORMIN [Concomitant]
     Active Substance: METFORMIN HYDROCHLORIDE
     Indication: Product used for unknown indication
     Dosage: 850,MG,DAILY
     Route: 048
  30. METOCLOPRAMIDE [Concomitant]
     Active Substance: METOCLOPRAMIDE
     Indication: Product used for unknown indication
     Dosage: 10,MG,ONCE
     Route: 042
     Dates: start: 20221202, end: 20221202
  31. MICAFUNGIN [Concomitant]
     Active Substance: MICAFUNGIN SODIUM
     Indication: Product used for unknown indication
     Dosage: 100,MG,DAILY
     Route: 042
     Dates: start: 20221205, end: 20221220
  32. OMEPRAZOLE [Concomitant]
     Active Substance: OMEPRAZOLE
     Indication: Product used for unknown indication
     Dosage: 20,MG,DAILY
     Route: 048
     Dates: start: 20221122
  33. ONDANSETRON [Concomitant]
     Active Substance: ONDANSETRON
     Dosage: 8,MG,DAILY
     Route: 042
     Dates: start: 20221123, end: 20221125
  34. ONDANSETRON [Concomitant]
     Active Substance: ONDANSETRON
     Indication: Product used for unknown indication
     Dosage: 8,MG,ONCE
     Route: 042
     Dates: start: 20221202, end: 20221202
  35. ACETAMINOPHEN [Concomitant]
     Active Substance: ACETAMINOPHEN
     Dosage: 1,G,ONCE
     Route: 042
     Dates: start: 20221204, end: 20221204
  36. ACETAMINOPHEN [Concomitant]
     Active Substance: ACETAMINOPHEN
     Indication: Product used for unknown indication
     Dosage: 1,G,OTHER
     Route: 042
     Dates: start: 20221213, end: 20221213
  37. ACETAMINOPHEN [Concomitant]
     Active Substance: ACETAMINOPHEN
     Dosage: 1000,MG,DAILY
     Route: 042
     Dates: start: 20221214, end: 20221215
  38. ACETAMINOPHEN [Concomitant]
     Active Substance: ACETAMINOPHEN
     Dosage: 1000,MG,ONCE
     Route: 042
     Dates: start: 20221201, end: 20221201
  39. ACETAMINOPHEN [Concomitant]
     Active Substance: ACETAMINOPHEN
     Dosage: 1000,MG,ONCE
     Route: 042
     Dates: start: 20221202, end: 20221202
  40. ACETAMINOPHEN [Concomitant]
     Active Substance: ACETAMINOPHEN
     Dosage: 1000,MG,FOUR TIMES DAILY
     Route: 042
     Dates: start: 20221130, end: 20221130
  41. ACETAMINOPHEN [Concomitant]
     Active Substance: ACETAMINOPHEN
     Dosage: 500,MG,DAILY
     Route: 042
     Dates: start: 20221128, end: 20221129
  42. ACETAMINOPHEN [Concomitant]
     Active Substance: ACETAMINOPHEN
     Dosage: 500,MG,ONCE
     Route: 048
     Dates: start: 20221128, end: 20221128
  43. SODIUM CHLORIDE [Concomitant]
     Active Substance: SODIUM CHLORIDE
     Indication: Product used for unknown indication
     Dosage: 1000,ML,TWICE DAILY
     Route: 042
     Dates: start: 20221123, end: 20221125
  44. PHYTONADIONE [Concomitant]
     Active Substance: PHYTONADIONE
     Indication: Product used for unknown indication
     Dosage: 10,MG,DAILY
     Route: 042
     Dates: start: 20221130, end: 20221220
  45. PIPERACILLIN SODIUM\TAZOBACTAM SODIUM [Concomitant]
     Active Substance: PIPERACILLIN SODIUM\TAZOBACTAM SODIUM
     Indication: Product used for unknown indication
     Dosage: 4/0.5,G,FOUR TIMES DAILY
     Route: 042
     Dates: start: 20221212, end: 20221219
  46. PIPERACILLIN SODIUM\TAZOBACTAM SODIUM [Concomitant]
     Active Substance: PIPERACILLIN SODIUM\TAZOBACTAM SODIUM
     Dosage: 4/0.5,G,FOUR TIMES DAILY
     Route: 042
     Dates: start: 20221128, end: 20221209
  47. SULFAMETHOXAZOLE\TRIMETHOPRIM [Concomitant]
     Active Substance: SULFAMETHOXAZOLE\TRIMETHOPRIM
     Indication: Product used for unknown indication
     Dosage: 160/800,MG,OTHER
     Route: 048
     Dates: start: 20221127

REACTIONS (1)
  - Febrile neutropenia [Recovered/Resolved]

NARRATIVE: CASE EVENT DATE: 20221212
